FAERS Safety Report 9363046 (Version 2)
Quarter: 2013Q3

REPORT INFORMATION
  Report Type: Spontaneous
  Country: US (occurrence: US)
  Receive Date: 20130624
  Receipt Date: 20130726
  Transmission Date: 20140515
  Serious: No
  Sender: FDA-Public Use
  Company Number: US-PFIZER INC-2013187426

PATIENT
  Age: 63 Year
  Sex: Female
  Weight: 116 kg

DRUGS (30)
  1. PRISTIQ [Suspect]
     Indication: DEPRESSION
     Dosage: 50 MG, UNK
  2. PRISTIQ [Suspect]
     Indication: ANXIETY
     Dosage: 100 MG, DAILY
     Dates: start: 201304
  3. CYMBALTA [Suspect]
     Indication: DEPRESSION
     Dosage: UNK
  4. CYMBALTA [Suspect]
     Indication: ANXIETY
     Dosage: UNK
     Dates: start: 201301, end: 201304
  5. ATENOLOL [Concomitant]
     Indication: HYPERTENSION
     Dosage: 50 MG, UNK
  6. LOSARTAN [Concomitant]
     Indication: HYPERTENSION
     Dosage: 100 MG DAILY AT NIGHT
  7. SIMVASTATIN [Concomitant]
     Indication: BLOOD CHOLESTEROL INCREASED
     Dosage: 40 MG, DAILY
  8. LEVOTHYROXINE [Concomitant]
     Indication: THYROID DISORDER
     Dosage: 50 UG, DAILY
  9. METFORMIN [Concomitant]
     Indication: DIABETES MELLITUS
     Dosage: 500 MG, DAILY
  10. NATEGLINIDE [Concomitant]
     Indication: DIABETES MELLITUS
     Dosage: 120 MG, 3X/DAY
  11. JANUMET [Concomitant]
     Indication: DIABETES MELLITUS
     Dosage: SITAGLIPTIN 50MG/ METFORMIN HYDROCHLORIDE1000 MG, DAILY
  12. RANITIDINE [Concomitant]
     Indication: GASTROOESOPHAGEAL REFLUX DISEASE
     Dosage: 150 MG, 2X/DAY ((MORNING AND BEDTIME) )
  13. CYCLOBENZAPRINE [Concomitant]
     Dosage: 10 MG, 3X/DAY
  14. OMEPRAZOLE [Concomitant]
     Dosage: 40 MG, DAILY
  15. BUTRANS [Concomitant]
     Indication: COMPLEX REGIONAL PAIN SYNDROME
     Dosage: 10 UG, WEEKLY
  16. LORAZEPAM [Concomitant]
     Indication: ANXIETY
     Dosage: UNK, ONE OR TWO DAILY AT BEDTIME
  17. DICYCLOMINE [Concomitant]
     Indication: IRRITABLE BOWEL SYNDROME
     Dosage: 20 MG, AS NEEDED
  18. ACIDOPHILUS [Concomitant]
     Dosage: UNK (1- 2 TABLETS), DAILY
  19. GLUCOSAMINE WITH MSM [Concomitant]
     Dosage: UNK, 3X/DAY
  20. CENTRUM [Concomitant]
     Dosage: UNK, DAILY
  21. FLAXSEED OIL [Concomitant]
     Dosage: 2 DF, DAILY
  22. COENZYME Q10 [Concomitant]
     Dosage: 100 MG,  DAILY
  23. FISH OIL [Concomitant]
     Indication: ABDOMINAL DISCOMFORT
     Dosage: 2 DF, 1X/DAY
  24. BENEFIBER [Concomitant]
     Indication: ABDOMINAL DISCOMFORT
     Dosage: UNK
  25. ALTERIL [Concomitant]
     Dosage: 2 DF, DAILY BEDTIME
  26. MEGA RED-KRILL [Concomitant]
     Dosage: UNK, DAILY
  27. RESTASIS [Concomitant]
     Indication: DRY EYE
     Dosage: UNK
     Route: 047
  28. SYSTANE [Concomitant]
     Indication: DRY EYE
     Dosage: UNK
     Route: 047
  29. SYSTANE NIGHTTIME [Concomitant]
     Indication: DRY EYE
     Dosage: UNK
  30. VITAMIN D [Concomitant]
     Indication: ROUTINE HEALTH MAINTENANCE
     Dosage: 5000 IU, 6X/WEEK (MONDAY TO FRIDAY)

REACTIONS (4)
  - Drug ineffective [Unknown]
  - Mouth ulceration [Unknown]
  - Dry skin [Unknown]
  - Oropharyngeal pain [Unknown]
